FAERS Safety Report 5941357-X (Version None)
Quarter: 2008Q4

REPORT INFORMATION
  Report Type: 
  Country: None (occurrence: None)
  Receive Date: 20081103
  Receipt Date: 20081024
  Transmission Date: 20090506
  Serious: Yes (Death, Life-Threatening)
  Sender: FDA-Public Use
  Company Number: TCI2008A04844

PATIENT
  Age: 88 Year
  Sex: Female

DRUGS (4)
  1. TAKEPRON INJECTION 30MG (LANSOPRAZOLE) (INJECTION) [Suspect]
     Indication: UPPER GASTROINTESTINAL HAEMORRHAGE
     Dosage: 60 MG ( 30 MG, 2 IN 1 D)
     Route: 042
     Dates: start: 20080914, end: 20080918
  2. FINIBAX(DORIPENEM HYDRATE) (INJECTION) [Concomitant]
  3. TRANSAMIN (TRANEXAMIC ACID) (INJECTION) [Concomitant]
  4. ADONA (CARBAZOCHROME SODIUM SULFONATE) (INJECTION) [Concomitant]

REACTIONS (3)
  - BLOOD POTASSIUM INCREASED [None]
  - HAEMOLYSIS [None]
  - HAEMOLYTIC ANAEMIA [None]
